FAERS Safety Report 9864183 (Version 1)
Quarter: 2014Q1

REPORT INFORMATION
  Report Type: Spontaneous
  Country: US (occurrence: US)
  Receive Date: 20140203
  Receipt Date: 20140203
  Transmission Date: 20141002
  Serious: No
  Sender: FDA-Public Use
  Company Number: US-AMGEN-USASP2014000035

PATIENT
  Age: 64 Year
  Sex: Male
  Weight: 99.77 kg

DRUGS (3)
  1. ENBREL [Suspect]
     Indication: PSORIASIS
     Dosage: 50 MG TWICE A WEEK
     Route: 058
     Dates: start: 20131212, end: 20131224
  2. LISINOPRIL + HIDROCLOROTIAZIDA [Concomitant]
     Dosage: 20-12.5, UNK
  3. ASA [Concomitant]
     Dosage: 81 MG EC, UNK

REACTIONS (5)
  - Muscle twitching [Not Recovered/Not Resolved]
  - Injection site erythema [Not Recovered/Not Resolved]
  - Injection site swelling [Not Recovered/Not Resolved]
  - Injection site induration [Not Recovered/Not Resolved]
  - Injection site warmth [Not Recovered/Not Resolved]
